FAERS Safety Report 17058867 (Version 2)
Quarter: 2020Q1

REPORT INFORMATION
  Report Type: Report from Study
  Country: TW (occurrence: TW)
  Receive Date: 20191121
  Receipt Date: 20200102
  Transmission Date: 20200409
  Serious: Yes (Hospitalization)
  Sender: FDA-Public Use
  Company Number: TW-REGENERON PHARMACEUTICALS, INC.-2019-66114

PATIENT

DRUGS (24)
  1. LACTULOSE AIWA [Concomitant]
     Dosage: 10 ML, QID
     Route: 048
     Dates: start: 20191024, end: 20191030
  2. RED BLOOD CELLS [Concomitant]
     Active Substance: HUMAN RED BLOOD CELL
     Indication: ANAEMIA
     Dosage: 2 DF, QD
     Route: 042
     Dates: start: 20191025, end: 20191025
  3. FENTANYL. [Concomitant]
     Active Substance: FENTANYL
     Indication: ABDOMINAL PAIN LOWER
     Dosage: 50 ?G, TID
     Route: 061
     Dates: start: 20190926, end: 20191009
  4. FENTANYL. [Concomitant]
     Active Substance: FENTANYL
     Dosage: 25 ?G, QD
     Route: 061
     Dates: start: 20191025, end: 20191025
  5. MORPHINE HCL [Concomitant]
     Active Substance: MORPHINE HYDROCHLORIDE
     Indication: ABDOMINAL PAIN LOWER
     Dosage: 4 MG, AS NECESSARY
     Route: 042
     Dates: start: 20191017, end: 20191024
  6. ALPRAZOLAM. [Concomitant]
     Active Substance: ALPRAZOLAM
     Indication: PANIC DISORDER
     Dosage: 0.5 MG, TID
     Route: 048
     Dates: start: 20191020, end: 20191025
  7. LACTULOSE AIWA [Concomitant]
     Indication: CONSTIPATION
     Dosage: 5 ML, QID
     Route: 048
     Dates: start: 20191021, end: 20191024
  8. POTASSIUM PERMANGANATE [Concomitant]
     Active Substance: POTASSIUM PERMANGANATE
     Indication: PROPHYLAXIS
     Dosage: UNK, BID
     Route: 061
     Dates: start: 20191022, end: 20191030
  9. LORAZEPAM. [Concomitant]
     Active Substance: LORAZEPAM
     Indication: PANIC DISORDER
     Dosage: 0.5 MG, AS NECESSARY
     Route: 048
     Dates: start: 20191022, end: 20191025
  10. MORPHINE HCL [Concomitant]
     Active Substance: MORPHINE HYDROCHLORIDE
     Dosage: 8 MG, QID
     Route: 042
     Dates: start: 20191022, end: 20191025
  11. GLUCOSE W/ELECTROLYTES [Concomitant]
     Indication: PROPHYLAXIS
     Dosage: 1500 ML, QD
     Route: 042
     Dates: start: 20191017, end: 20191024
  12. MORPHINE HCL [Concomitant]
     Active Substance: MORPHINE HYDROCHLORIDE
     Dosage: 4 MG, AS NECESSARY
     Route: 042
     Dates: start: 20191026, end: 20191030
  13. MEGESTROL ACETATE. [Concomitant]
     Active Substance: MEGESTROL ACETATE
     Indication: PROPHYLAXIS
     Dosage: 2 ML, BID
     Route: 048
     Dates: start: 20191020, end: 20191030
  14. TRAMADOL + ACETAMINOFEN [Concomitant]
     Active Substance: ACETAMINOPHEN\TRAMADOL
     Indication: ABDOMINAL PAIN LOWER
     Dosage: 1 DF, TID
     Route: 048
     Dates: start: 20191028
  15. FENTANYL. [Concomitant]
     Active Substance: FENTANYL
     Dosage: 50 ?G, TID
     Route: 061
     Dates: start: 20191026
  16. MAGNESIUM OXIDE. [Concomitant]
     Active Substance: MAGNESIUM OXIDE
     Indication: CONSTIPATION
     Dosage: 500 MG, TID
     Route: 048
     Dates: start: 20191019, end: 20191030
  17. LORAZEPAM. [Concomitant]
     Active Substance: LORAZEPAM
     Dosage: 0.5 MG, AS NECESSARY
     Route: 048
     Dates: start: 20191028, end: 20191030
  18. SENNOSIDE                          /00571901/ [Concomitant]
     Active Substance: SENNOSIDES A AND B
     Indication: CONSTIPATION
     Dosage: 40 MG, QD
     Route: 048
     Dates: start: 20190808
  19. OXYCODONE HYDROCHLORIDE. [Concomitant]
     Active Substance: OXYCODONE HYDROCHLORIDE
     Indication: ABDOMINAL PAIN LOWER
     Dosage: 10 MG, BID
     Route: 048
     Dates: start: 20191025, end: 20191028
  20. MORPHINE HCL [Concomitant]
     Active Substance: MORPHINE HYDROCHLORIDE
     Dosage: 6 MG, QID
     Route: 042
     Dates: start: 20191017, end: 20191022
  21. ALPRAZOLAM. [Concomitant]
     Active Substance: ALPRAZOLAM
     Dosage: 0.5 MG, TID
     Route: 048
     Dates: start: 20191028
  22. DIPHENHYDRAMINE HCL [Concomitant]
     Active Substance: DIPHENHYDRAMINE HYDROCHLORIDE
     Indication: PROPHYLAXIS
     Dosage: 30 MG, UNK
     Route: 042
     Dates: start: 20191025, end: 20191025
  23. CEMIPLIMAB [Suspect]
     Active Substance: CEMIPLIMAB
     Indication: CERVIX CARCINOMA
     Dosage: 350 MG, Q3W
     Route: 042
     Dates: start: 20190906, end: 20191025
  24. EVAC                               /07938101/ [Concomitant]
     Indication: CONSTIPATION
     Dosage: 118 ML, QD
     Route: 054
     Dates: start: 20191022, end: 20191022

REACTIONS (1)
  - Oral papule [Recovered/Resolved]

NARRATIVE: CASE EVENT DATE: 20191108
